FAERS Safety Report 14984307 (Version 1)
Quarter: 2018Q2

REPORT INFORMATION
  Report Type: Spontaneous
  Country: US (occurrence: US)
  Receive Date: 20180607
  Receipt Date: 20180607
  Transmission Date: 20180711
  Serious: No
  Sender: FDA-Public Use
  Company Number: US-JAZZ-2018-US-004962

PATIENT
  Age: 20 Year

DRUGS (1)
  1. DEFITELIO [Suspect]
     Active Substance: DEFIBROTIDE SODIUM
     Indication: PRODUCT USED FOR UNKNOWN INDICATION
     Dosage: UNK
     Dates: start: 20180321

REACTIONS (4)
  - Blood creatinine increased [Unknown]
  - Transaminases increased [Unknown]
  - International normalised ratio increased [Recovering/Resolving]
  - Blood bilirubin increased [Unknown]

NARRATIVE: CASE EVENT DATE: 20180323
